FAERS Safety Report 7805089-5 (Version None)
Quarter: 2011Q4

REPORT INFORMATION
  Report Type: 
  Country: None (occurrence: None)
  Receive Date: 20111010
  Receipt Date: 20110929
  Transmission Date: 20120403
  Serious: Yes (Other)
  Sender: FDA-Public Use
  Company Number: CA-GILEAD-2011-0044705

PATIENT

DRUGS (13)
  1. MULTIVITAMINS, COMBINATIONS [Concomitant]
  2. LOVAZA [Concomitant]
  3. MAGNESIUM [Concomitant]
  4. FUROSEMIDE [Concomitant]
  5. INDAPAMIDE [Concomitant]
  6. ALLOPURINOL [Concomitant]
     Dosage: UNK MG, UNK
     Route: 048
  7. EZETIMIBE [Concomitant]
  8. PANTOLOC                           /01263202/ [Concomitant]
  9. AMBRISENTAN [Suspect]
     Indication: PULMONARY ARTERIAL HYPERTENSION
     Dosage: 2.5MG PER DAY
     Route: 048
     Dates: start: 20110909
  10. ASPIRIN [Concomitant]
     Dosage: UNK MG, UNK
  11. ATORVASTATIN [Concomitant]
  12. DOXEPIN [Concomitant]
  13. CALCIUM CARBONATE [Concomitant]

REACTIONS (1)
  - LIVER FUNCTION TEST ABNORMAL [None]
